FAERS Safety Report 18769748 (Version 1)
Quarter: 2021Q1

REPORT INFORMATION
  Report Type: Report from Study
  Country: US (occurrence: US)
  Receive Date: 20210121
  Receipt Date: 20210121
  Transmission Date: 20210419
  Serious: Yes (Other)
  Sender: FDA-Public Use
  Company Number: US-MYLANLABS-2021M1003917

PATIENT

DRUGS (6)
  1. CRIZOTINIB [Suspect]
     Active Substance: CRIZOTINIB
     Dosage: 215 MILLIGRAM/SQ. METER, BID...
     Route: 048
  2. DEXRAZOXANE. [Concomitant]
     Active Substance: DEXRAZOXANE
     Indication: SUPPORTIVE CARE
     Route: 065
  3. CRIZOTINIB [Suspect]
     Active Substance: CRIZOTINIB
     Dosage: 280 MILLIGRAM/SQ. METER, BID...
     Route: 048
  4. VINCRISTINE [Suspect]
     Active Substance: VINCRISTINE
     Indication: NEOPLASM MALIGNANT
     Dosage: 1.5 MG/M2/DOSE (MAXIMUM...
     Route: 042
  5. DOXORUBICIN [Suspect]
     Active Substance: DOXORUBICIN
     Indication: NEOPLASM MALIGNANT
     Dosage: 45 MG/M2/DOSE ON DAY 1...
     Route: 042
  6. CRIZOTINIB [Suspect]
     Active Substance: CRIZOTINIB
     Indication: NEOPLASM MALIGNANT
     Dosage: 165 MILLIGRAM/SQ. METER, BID...
     Route: 048

REACTIONS (2)
  - Electrocardiogram QT prolonged [Unknown]
  - Dehydration [Unknown]
